FAERS Safety Report 17296988 (Version 3)
Quarter: 2020Q1

REPORT INFORMATION
  Report Type: Spontaneous
  Country: HR (occurrence: HR)
  Receive Date: 20200122
  Receipt Date: 20200221
  Transmission Date: 20200409
  Serious: Yes (Death, Life-Threatening, Disabling, Other)
  Sender: FDA-Public Use
  Company Number: HR-ROCHE-2519601

PATIENT
  Age: 40 Year
  Sex: Female

DRUGS (20)
  1. CYCLOPHOSPHAMIDE. [Suspect]
     Active Substance: CYCLOPHOSPHAMIDE
     Indication: DIFFUSE LARGE B-CELL LYMPHOMA STAGE IV
     Dosage: FIVE CYCLES ( R-CHOEP PROTOCOL) AND THREE CYCLES (R-CHEVP PROTOCOL)
     Route: 065
  2. ACYCLOVIR [ACICLOVIR] [Suspect]
     Active Substance: ACYCLOVIR
     Indication: ANTIBIOTIC PROPHYLAXIS
     Route: 065
  3. FLUCONAZOLE. [Suspect]
     Active Substance: FLUCONAZOLE
     Indication: ANTIBIOTIC PROPHYLAXIS
     Route: 065
  4. VINCRISTINE [Suspect]
     Active Substance: VINCRISTINE
     Indication: DIFFUSE LARGE B-CELL LYMPHOMA STAGE IV
     Dosage: FIVE CYCLES ( R-CHOEP PROTOCOL)
     Route: 065
  5. ALDACTONE [Concomitant]
     Active Substance: SPIRONOLACTONE
  6. FURSEMIDE [Concomitant]
     Active Substance: FUROSEMIDE
  7. CIPROFLOXACIN. [Suspect]
     Active Substance: CIPROFLOXACIN
     Indication: ANTIBIOTIC PROPHYLAXIS
     Route: 065
  8. ETOPOSIDE. [Suspect]
     Active Substance: ETOPOSIDE
     Indication: DIFFUSE LARGE B-CELL LYMPHOMA STAGE IV
     Dosage: FIVE CYCLES ( R-CHOEP PROTOCOL) AND THREE CYCLES (R-CHEVP PROTOCOL)
     Route: 065
  9. THIOGUANINE [Suspect]
     Active Substance: THIOGUANINE
     Indication: REFRACTORY ANAEMIA WITH AN EXCESS OF BLASTS
     Route: 065
  10. AZACITIDINE. [Suspect]
     Active Substance: AZACITIDINE
     Indication: ACUTE MYELOID LEUKAEMIA
     Dosage: THREE CYCLES
     Route: 065
  11. TRITACE [Concomitant]
     Active Substance: RAMIPRIL
  12. RITUXIMAB. [Suspect]
     Active Substance: RITUXIMAB
     Indication: DIFFUSE LARGE B-CELL LYMPHOMA STAGE IV
     Dosage: FIVE CYCLES ( R-CHOEP PROTOCOL) AND THREE CYCLES (R-CHEVP PROTOCOL)
     Route: 065
  13. BELODERM [BETAMETHASONE] [Concomitant]
  14. CARVELOL [Concomitant]
     Active Substance: CARVEDILOL
  15. GELCLAIR [HYALURONATE SODIUM;POVIDONE] [Concomitant]
  16. VINBLASTINE [Suspect]
     Active Substance: VINBLASTINE
     Indication: DIFFUSE LARGE B-CELL LYMPHOMA STAGE IV
     Dosage: THREE CYCLES (R-CHEVP PROTOCOL)
     Route: 065
  17. CONTROLOC [Concomitant]
     Active Substance: PANTOPRAZOLE SODIUM
  18. METHYLPREDNISOLONE. [Suspect]
     Active Substance: METHYLPREDNISOLONE
     Indication: DIFFUSE LARGE B-CELL LYMPHOMA STAGE IV
     Dosage: FIVE CYCLES ( R-CHOEP PROTOCOL) AND THREE CYCLES (R-CHEVP PROTOCOL)
     Route: 065
  19. DOXORUBICIN [Suspect]
     Active Substance: DOXORUBICIN
     Indication: DIFFUSE LARGE B-CELL LYMPHOMA STAGE IV
     Dosage: FIVE CYCLES ( R-CHOEP PROTOCOL) AND THREE CYCLES (R-CHEVP PROTOCOL)
     Route: 065
  20. DIFLUCAN [Concomitant]
     Active Substance: FLUCONAZOLE

REACTIONS (12)
  - Toxic neuropathy [Unknown]
  - Leukaemia [Unknown]
  - Thrombocytopenia [Unknown]
  - Myelodysplastic syndrome [Unknown]
  - Aspergillus infection [Fatal]
  - Refractory anaemia with an excess of blasts [Unknown]
  - Congestive cardiomyopathy [Unknown]
  - Acute myeloid leukaemia [Unknown]
  - Neutropenia [Unknown]
  - Mouth ulceration [Unknown]
  - Staphylococcal sepsis [Fatal]
  - Pancytopenia [Unknown]
